FAERS Safety Report 11288712 (Version 1)
Quarter: 2015Q3

REPORT INFORMATION
  Report Type: Spontaneous
  Country: US (occurrence: US)
  Receive Date: 20150721
  Receipt Date: 20150721
  Transmission Date: 20151125
  Serious: No
  Sender: FDA-Public Use
  Company Number: US-UNITED THERAPEUTICS-UNT-2015-003674

PATIENT
  Sex: Male
  Weight: 35.37 kg

DRUGS (5)
  1. LETAIRIS [Suspect]
     Active Substance: AMBRISENTAN
     Indication: PRODUCT USED FOR UNKNOWN INDICATION
     Dosage: 10 MG, QD
     Route: 065
     Dates: start: 201412
  2. REMODULIN [Suspect]
     Active Substance: TREPROSTINIL
     Indication: PULMONARY HYPERTENSION
     Dosage: 0.07 ?G/KG/MIN, CONTINUING
     Route: 058
     Dates: start: 20141218
  3. REMODULIN [Suspect]
     Active Substance: TREPROSTINIL
     Dosage: 0.075 ?G/KG/MIN, CONTINUING
     Route: 058
     Dates: start: 20141217
  4. REVATIO [Concomitant]
     Active Substance: SILDENAFIL CITRATE
     Indication: PRODUCT USED FOR UNKNOWN INDICATION
  5. REMODULIN [Suspect]
     Active Substance: TREPROSTINIL
     Dosage: 0.0725 ?G/KG/MIN, CONTINUING
     Route: 058

REACTIONS (5)
  - Infusion site oedema [Unknown]
  - Therapy cessation [Unknown]
  - Off label use [Unknown]
  - Back pain [Unknown]
  - Infusion site pain [Unknown]
